FAERS Safety Report 23363832 (Version 1)
Quarter: 2024Q1

REPORT INFORMATION
  Report Type: Spontaneous
  Country: US (occurrence: US)
  Receive Date: 20240104
  Receipt Date: 20240104
  Transmission Date: 20240409
  Serious: Yes (Life-Threatening, Hospitalization, Other)
  Sender: FDA-Public Use
  Company Number: US-MLMSERVICE-20231221-4737161-1

PATIENT
  Sex: Male

DRUGS (1)
  1. FENTANYL [Suspect]
     Active Substance: FENTANYL\FENTANYL CITRATE
     Indication: Product used for unknown indication

REACTIONS (5)
  - Stress cardiomyopathy [Recovering/Resolving]
  - Cardiac arrest [Recovering/Resolving]
  - Drug withdrawal syndrome [Unknown]
  - Drug dependence [Unknown]
  - Drug abuse [Unknown]
